FAERS Safety Report 11743110 (Version 1)
Quarter: 2015Q4

REPORT INFORMATION
  Report Type: Spontaneous
  Country: PT (occurrence: PT)
  Receive Date: 20151116
  Receipt Date: 20151116
  Transmission Date: 20160304
  Serious: Yes (Other)
  Sender: FDA-Public Use
  Company Number: PT-WEST-WARD PHARMACEUTICALS CORP.-PT-H14001-14-00185

PATIENT
  Age: 36 Year
  Sex: Female

DRUGS (5)
  1. ROPIVACAINE [Concomitant]
     Active Substance: ROPIVACAINE
     Indication: EPIDURAL ANAESTHESIA
     Route: 008
  2. OXYTOCIN. [Concomitant]
     Active Substance: OXYTOCIN
     Indication: PRODUCT USED FOR UNKNOWN INDICATION
     Route: 065
  3. SUFENTANIL [Concomitant]
     Active Substance: SUFENTANIL
     Indication: EPIDURAL ANAESTHESIA
     Route: 008
  4. CEFAZOLIN [Suspect]
     Active Substance: CEFAZOLIN
     Indication: PRODUCT USED FOR UNKNOWN INDICATION
     Route: 065
  5. EPHEDRINE. [Concomitant]
     Active Substance: EPHEDRINE
     Indication: PRODUCT USED FOR UNKNOWN INDICATION
     Route: 065

REACTIONS (5)
  - Hypotension [Unknown]
  - Exposure during pregnancy [Unknown]
  - Angioedema [Unknown]
  - Erythema [Unknown]
  - Hypersensitivity [Unknown]
